FAERS Safety Report 25702878 (Version 2)
Quarter: 2025Q3

REPORT INFORMATION
  Report Type: Spontaneous
  Country: JP (occurrence: JP)
  Receive Date: 20250819
  Receipt Date: 20250828
  Transmission Date: 20251021
  Serious: Yes (Hospitalization, Other)
  Sender: ALEXION PHARMACEUTICALS
  Company Number: JP-ASTRAZENECA-202508JPN011023JP

PATIENT
  Age: 80 Year
  Sex: Female

DRUGS (1)
  1. TAGRISSO [Suspect]
     Active Substance: OSIMERTINIB
     Indication: Neoplasm
     Dosage: 80 MILLIGRAM, QD
     Route: 065
     Dates: start: 20250814

REACTIONS (3)
  - Respiratory distress [Unknown]
  - Oxygen saturation decreased [Unknown]
  - Interstitial lung disease [Unknown]

NARRATIVE: CASE EVENT DATE: 20250815
